FAERS Safety Report 22276645 (Version 1)
Quarter: 2023Q2

REPORT INFORMATION
  Report Type: Spontaneous
  Country: FR (occurrence: FR)
  Receive Date: 20230503
  Receipt Date: 20230503
  Transmission Date: 20230722
  Serious: Yes (Other)
  Sender: FDA-Public Use
  Company Number: FR-AFSSAPS-BX2023000580

PATIENT
  Age: 55 Year
  Sex: Male

DRUGS (6)
  1. ARIPIPRAZOLE [Suspect]
     Active Substance: ARIPIPRAZOLE
     Indication: Wrong patient received product
     Dosage: 15 MILLIGRAM, 1 TOTAL
     Route: 048
     Dates: start: 20230311, end: 20230311
  2. QUETIAPINE [Suspect]
     Active Substance: QUETIAPINE
     Indication: Wrong patient received product
     Dosage: 650 MILLIGRAM, 1 TOTAL
     Route: 048
     Dates: start: 20230311, end: 20230311
  3. TOPIRAMATE [Suspect]
     Active Substance: TOPIRAMATE
     Indication: Wrong patient received product
     Dosage: 100 MILLIGRAM, 1 TOTAL
     Route: 048
     Dates: start: 20230311, end: 20230311
  4. RIVOTRIL [Suspect]
     Active Substance: CLONAZEPAM
     Indication: Wrong patient received product
     Dosage: 1.5 MILLIGRAM, 1 TOTAL
     Route: 048
     Dates: start: 20230311, end: 20230311
  5. MIDODRINE HYDROCHLORIDE [Concomitant]
     Active Substance: MIDODRINE HYDROCHLORIDE
     Indication: Wrong patient received product
     Dosage: 50 MILLIGRAM, 1 TOTAL
     Route: 048
     Dates: start: 20230311, end: 20230311
  6. TROPATEPINE HYDROCHLORIDE [Concomitant]
     Active Substance: TROPATEPINE HYDROCHLORIDE
     Indication: Wrong patient received product
     Dosage: 10 MILLIGRAM, 1 TOTAL
     Route: 048
     Dates: start: 20230311, end: 20230311

REACTIONS (3)
  - Somnolence [Recovered/Resolved]
  - Hypotension [Recovered/Resolved]
  - Wrong patient received product [Recovered/Resolved]

NARRATIVE: CASE EVENT DATE: 20230311
